FAERS Safety Report 12434048 (Version 1)
Quarter: 2016Q2

REPORT INFORMATION
  Report Type: Spontaneous
  Country: US (occurrence: US)
  Receive Date: 20160603
  Receipt Date: 20160603
  Transmission Date: 20160815
  Serious: Yes (Death, Life-Threatening, Hospitalization, Other)
  Sender: FDA-Public Use
  Company Number: US-BRISTOL-MYERS SQUIBB COMPANY-BMS-2016-041485

PATIENT
  Sex: Female
  Weight: 52.16 kg

DRUGS (1)
  1. OPDIVO [Suspect]
     Active Substance: NIVOLUMAB
     Indication: NON-SMALL CELL LUNG CANCER
     Dosage: 163 MG, Q2WK
     Route: 065

REACTIONS (12)
  - Abscess drainage [Unknown]
  - Pain [Unknown]
  - Thirst [Unknown]
  - Fall [Unknown]
  - Peripheral swelling [Unknown]
  - Continuous positive airway pressure [Unknown]
  - Cough [Unknown]
  - Death [Fatal]
  - Osteomyelitis [Unknown]
  - Abscess oral [Unknown]
  - Subcutaneous abscess [Unknown]
  - Oxygen saturation decreased [Unknown]
